FAERS Safety Report 9710752 (Version 1)
Quarter: 2013Q4

REPORT INFORMATION
  Report Type: Spontaneous
  Country: US (occurrence: US)
  Receive Date: 20131126
  Receipt Date: 20131126
  Transmission Date: 20140711
  Serious: No
  Sender: FDA-Public Use
  Company Number: US-BRISTOL-MYERS SQUIBB COMPANY-18977231

PATIENT
  Age: 72 Year
  Sex: Female
  Weight: 72.56 kg

DRUGS (4)
  1. BYETTA [Suspect]
     Dosage: LAST DOSE-02JUN11
     Route: 058
     Dates: start: 201110
  2. TOPROL [Concomitant]
  3. LIPITOR [Concomitant]
  4. PROTONIX [Concomitant]

REACTIONS (2)
  - Gastrooesophageal reflux disease [Recovering/Resolving]
  - Weight decreased [Unknown]
